FAERS Safety Report 16853867 (Version 1)
Quarter: 2019Q3

REPORT INFORMATION
  Report Type: Spontaneous
  Country: US (occurrence: US)
  Receive Date: 20190926
  Receipt Date: 20190926
  Transmission Date: 20191005
  Serious: Yes (Hospitalization)
  Sender: FDA-Public Use
  Company Number: US-ROCHE-2413510

PATIENT
  Age: 61 Year
  Sex: Female

DRUGS (5)
  1. SILDENAFIL. [Concomitant]
     Active Substance: SILDENAFIL
  2. METOLAZONE. [Concomitant]
     Active Substance: METOLAZONE
  3. METOPROLOL. [Concomitant]
     Active Substance: METOPROLOL
  4. ESBRIET [Suspect]
     Active Substance: PIRFENIDONE
     Indication: CARDIAC DISORDER
     Dosage: DAILY; ONGOING: YES
     Route: 048
     Dates: start: 20190720
  5. LASIX [Concomitant]
     Active Substance: FUROSEMIDE

REACTIONS (5)
  - Acute respiratory failure [Unknown]
  - Oxygen saturation decreased [Unknown]
  - Ventricular tachycardia [Unknown]
  - Pneumonia [Unknown]
  - Pulmonary arterial hypertension [Unknown]

NARRATIVE: CASE EVENT DATE: 20190902
